FAERS Safety Report 6577251-3 (Version None)
Quarter: 2010Q1

REPORT INFORMATION
  Report Type: 
  Country: None (occurrence: None)
  Receive Date: 20100210
  Receipt Date: 20100204
  Transmission Date: 20100710
  Serious: Yes (Other)
  Sender: FDA-Public Use
  Company Number: US-B.I. PHARMACEUTICALS,INC./RIDGEFIELD-2010-BP-01406BP

PATIENT

DRUGS (3)
  1. FLOMAX [Suspect]
  2. VIAGRA [Suspect]
  3. AVODART [Suspect]

REACTIONS (1)
  - ANGINA PECTORIS [None]
